FAERS Safety Report 25951278 (Version 1)
Quarter: 2025Q4

REPORT INFORMATION
  Report Type: Report from Study
  Country: AR (occurrence: AR)
  Receive Date: 20251023
  Receipt Date: 20251023
  Transmission Date: 20260117
  Serious: Yes (Other)
  Sender: ABBVIE
  Company Number: AR-ABBVIE-6513678

PATIENT
  Age: 50 Year
  Sex: Female

DRUGS (1)
  1. RINVOQ [Suspect]
     Active Substance: UPADACITINIB
     Indication: Dermatitis atopic
     Dosage: FORM STRENGTH -  30MG X 30 TABLETS
     Route: 048
     Dates: start: 20240603

REACTIONS (2)
  - Blindness [Not Recovered/Not Resolved]
  - Liver disorder [Not Recovered/Not Resolved]

NARRATIVE: CASE EVENT DATE: 20250101
